FAERS Safety Report 25751499 (Version 1)
Quarter: 2025Q3

REPORT INFORMATION
  Report Type: Spontaneous
  Country: CN (occurrence: CN)
  Receive Date: 20250902
  Receipt Date: 20250902
  Transmission Date: 20251020
  Serious: Yes (Hospitalization, Other)
  Sender: NOVO NORDISK
  Company Number: CN-NOVOPROD-1506572

PATIENT
  Sex: Male

DRUGS (2)
  1. NOVOLIN R [Suspect]
     Active Substance: INSULIN HUMAN
     Dosage: 17 IU, QD (14U IN THE MORNING AND 3U IN THE EVENING)
  2. NOVOLIN R [Suspect]
     Active Substance: INSULIN HUMAN
     Indication: Type 2 diabetes mellitus
     Dosage: 48 IU, QD (20U IN THE MORNING, 10U AT NOON, AND 18U IN THE EVENING)
     Dates: start: 2015

REACTIONS (2)
  - Lower limb fracture [Unknown]
  - Hypoglycaemia [Unknown]

NARRATIVE: CASE EVENT DATE: 20150101
